FAERS Safety Report 5851975-5 (Version None)
Quarter: 2008Q3

REPORT INFORMATION
  Report Type: 
  Country: None (occurrence: None)
  Receive Date: 20080819
  Receipt Date: 20080808
  Transmission Date: 20090109
  Serious: Yes (Hospitalization)
  Sender: FDA-Public Use
  Company Number: 2008AL005003

PATIENT
  Age: 75 Year
  Sex: Female
  Weight: 148.3262 kg

DRUGS (1)
  1. DIGOXIN [Suspect]
     Indication: CARDIAC FAILURE CONGESTIVE
     Dosage: 0.25MG DAILY PO
     Route: 048
     Dates: start: 20060101

REACTIONS (6)
  - CONVULSION [None]
  - ELECTROLYTE IMBALANCE [None]
  - NAUSEA [None]
  - PERICARDIAL EFFUSION [None]
  - TRANSIENT ISCHAEMIC ATTACK [None]
  - VOMITING [None]
